FAERS Safety Report 9426505 (Version 1)
Quarter: 2013Q3

REPORT INFORMATION
  Report Type: Spontaneous
  Country: NL (occurrence: NL)
  Receive Date: 20130730
  Receipt Date: 20130730
  Transmission Date: 20140515
  Serious: Yes (Other)
  Sender: FDA-Public Use
  Company Number: NL-BAYER-2013-088508

PATIENT
  Age: 33 Year
  Sex: Female

DRUGS (1)
  1. MIRENA [Suspect]
     Dosage: 20 MCG/24HR, CONT
     Route: 015
     Dates: start: 20061114

REACTIONS (4)
  - Vaginal haemorrhage [None]
  - Device dislocation [Recovered/Resolved]
  - Uterine leiomyoma [None]
  - Endometrial cancer metastatic [None]
